FAERS Safety Report 6337419-8 (Version None)
Quarter: 2009Q3

REPORT INFORMATION
  Report Type: 
  Country: None (occurrence: None)
  Receive Date: 20090901
  Receipt Date: 20090901
  Transmission Date: 20100115
  Serious: Yes (Other)
  Sender: FDA-Public Use
  Company Number: None

PATIENT
  Age: 30 Year
  Sex: Male
  Weight: 70.3075 kg

DRUGS (1)
  1. CREST PRO-HEALTH RINSE PROCTER + GAMBLE [Suspect]

REACTIONS (1)
  - TOOTH DISCOLOURATION [None]
